FAERS Safety Report 12281073 (Version 1)
Quarter: 2016Q2

REPORT INFORMATION
  Report Type: Spontaneous
  Country: US (occurrence: None)
  Receive Date: 20160418
  Receipt Date: 20160418
  Transmission Date: 20160815
  Serious: Yes (Other)
  Sender: FDA-Public Use
  Company Number: None

PATIENT
  Age: 41 Year
  Sex: Female
  Weight: 70.31 kg

DRUGS (2)
  1. AMLODIPINE 5MG, LUPIN MANUF. [Suspect]
     Active Substance: AMLODIPINE BESYLATE
     Indication: HYPERTENSION
     Route: 048
     Dates: start: 20160128, end: 20160205
  2. VALSARTAN 160MG, RANBAXY MANUF [Suspect]
     Active Substance: VALSARTAN
     Indication: HYPERTENSION
     Route: 048
     Dates: start: 20160128, end: 20160205

REACTIONS (4)
  - Headache [None]
  - Dizziness [None]
  - Blood pressure inadequately controlled [None]
  - Product substitution issue [None]

NARRATIVE: CASE EVENT DATE: 20160128
